FAERS Safety Report 19751739 (Version 2)
Quarter: 2021Q3

REPORT INFORMATION
  Report Type: Other
  Country: JP (occurrence: JP)
  Receive Date: 20210827
  Receipt Date: 20210901
  Transmission Date: 20211014
  Serious: Yes (Death)
  Sender: FDA-Public Use
  Company Number: JP-ROCHE-2898464

PATIENT
  Age: 49 Year
  Sex: Female

DRUGS (3)
  1. CARBOPLATIN. [Concomitant]
     Active Substance: CARBOPLATIN
     Indication: OVARIAN GERM CELL TERATOMA
     Route: 041
  2. AVASTIN [Suspect]
     Active Substance: BEVACIZUMAB
     Indication: OVARIAN GERM CELL TERATOMA
     Route: 041
  3. PACLITAXEL. [Concomitant]
     Active Substance: PACLITAXEL
     Indication: OVARIAN GERM CELL TERATOMA
     Dosage: 0.05 UNK
     Route: 041

REACTIONS (2)
  - Drug ineffective [Unknown]
  - Disease progression [Fatal]
